FAERS Safety Report 15422567 (Version 1)
Quarter: 2018Q3

REPORT INFORMATION
  Report Type: Spontaneous
  Country: US (occurrence: US)
  Receive Date: 20180925
  Receipt Date: 20180925
  Transmission Date: 20181010
  Serious: Yes (Other)
  Sender: FDA-Public Use
  Company Number: US-INSYS THERAPEUTICS, INC-INS201809-000332

PATIENT
  Sex: Female

DRUGS (2)
  1. SUBSYS [Suspect]
     Active Substance: FENTANYL
     Indication: ARTHRALGIA
     Route: 060
     Dates: start: 2014, end: 2016
  2. UNSPECIFIED NARCOTICS [Suspect]
     Active Substance: UNSPECIFIED INGREDIENT

REACTIONS (3)
  - Drug dependence [Unknown]
  - Injury [Unknown]
  - Adverse reaction [Unknown]
